FAERS Safety Report 9079040 (Version 1)
Quarter: 2013Q1

REPORT INFORMATION
  Report Type: Report from Study
  Country: US (occurrence: US)
  Receive Date: 20130130
  Receipt Date: 20130130
  Transmission Date: 20140127
  Serious: No
  Sender: FDA-Public Use
  Company Number: US-ABBOTT-12P-163-0952546-00

PATIENT
  Age: 37 Year
  Sex: Male

DRUGS (2)
  1. HUMIRA 40 MG/ 0.8 ML PRE-FILLED SYRINGE [Suspect]
     Indication: PSORIASIS
     Dates: start: 20120601
  2. HUMIRA 40 MG/ 0.8 ML PRE-FILLED SYRINGE [Suspect]
     Indication: PSORIATIC ARTHROPATHY

REACTIONS (8)
  - Joint stiffness [Not Recovered/Not Resolved]
  - Arthralgia [Not Recovered/Not Resolved]
  - Joint stiffness [Unknown]
  - Arthralgia [Recovering/Resolving]
  - Psoriasis [Recovering/Resolving]
  - Ligament sprain [Unknown]
  - Joint swelling [Unknown]
  - Arthralgia [Unknown]
